FAERS Safety Report 15859891 (Version 2)
Quarter: 2019Q1

REPORT INFORMATION
  Report Type: Other
  Country: US (occurrence: US)
  Receive Date: 20190123
  Receipt Date: 20190201
  Transmission Date: 20190417
  Serious: Yes (Other)
  Sender: FDA-Public Use
  Company Number: US-SUNOVION-2019SUN000188

PATIENT
  Age: 45 Year
  Sex: Female
  Weight: 112.02 kg

DRUGS (8)
  1. PRAZOSIN HYDROCHLORIDE. [Concomitant]
     Active Substance: PRAZOSIN HYDROCHLORIDE
     Indication: NIGHTMARE
     Dosage: 5 MG, QD
     Route: 048
  2. LATUDA [Suspect]
     Active Substance: LURASIDONE HYDROCHLORIDE
     Indication: DEPRESSION
     Dosage: 80 MG
     Route: 048
     Dates: end: 20190116
  3. LATUDA [Suspect]
     Active Substance: LURASIDONE HYDROCHLORIDE
     Indication: ANXIETY
     Dosage: 60 MG
     Route: 048
  4. ZYRTEC [Concomitant]
     Active Substance: CETIRIZINE HYDROCHLORIDE
     Indication: HYPERSENSITIVITY
     Dosage: PRN
  5. ATORVASTATIN [Concomitant]
     Active Substance: ATORVASTATIN
     Indication: BLOOD CHOLESTEROL ABNORMAL
     Dosage: 40 MG, QD
     Route: 048
  6. FISH OIL [Concomitant]
     Active Substance: FISH OIL
     Dosage: UNK
  7. LATUDA [Suspect]
     Active Substance: LURASIDONE HYDROCHLORIDE
     Indication: AFFECTIVE DISORDER
     Dosage: OFF AND ON FOR 2 YEARS
     Route: 048
  8. BUSPAR [Concomitant]
     Active Substance: BUSPIRONE HYDROCHLORIDE
     Dosage: 1/2 30 MG TAB, BID
     Route: 048

REACTIONS (23)
  - Poor quality sleep [Unknown]
  - Anger [Unknown]
  - Increased appetite [Unknown]
  - Fatigue [Unknown]
  - Type 2 diabetes mellitus [Unknown]
  - Eye colour change [Unknown]
  - Frequent bowel movements [Unknown]
  - Abdominal pain [Unknown]
  - Diarrhoea [Unknown]
  - Body height increased [Unknown]
  - Feeling abnormal [Unknown]
  - Discharge [Unknown]
  - Feeling hot [Unknown]
  - Asthenia [Unknown]
  - Panic attack [Unknown]
  - Off label use [Unknown]
  - Cerebral disorder [Unknown]
  - Back pain [Unknown]
  - Nausea [Unknown]
  - Peripheral swelling [Unknown]
  - Liver disorder [Unknown]
  - Blood glucose increased [Unknown]
  - Abdominal discomfort [Unknown]
